FAERS Safety Report 6135548-5 (Version None)
Quarter: 2009Q1

REPORT INFORMATION
  Report Type: 
  Country: None (occurrence: None)
  Receive Date: 20090327
  Receipt Date: 20090320
  Transmission Date: 20090719
  Serious: Yes (Hospitalization)
  Sender: FDA-Public Use
  Company Number: D0060959A

PATIENT
  Sex: Female
  Weight: 108 kg

DRUGS (7)
  1. LAMICTAL [Suspect]
     Dosage: 25MG PER DAY
     Route: 048
     Dates: start: 20080721, end: 20080911
  2. VALPROATE SODIUM [Suspect]
     Dosage: 1800MG PER DAY
     Route: 048
     Dates: start: 20080618, end: 20081015
  3. TAVOR [Suspect]
     Dosage: 4MG PER DAY
     Route: 048
     Dates: start: 20080822, end: 20080911
  4. TRAMADOL HCL [Suspect]
     Dosage: 100MG PER DAY
     Route: 048
  5. VOLTAREN [Concomitant]
     Dosage: 75MG PER DAY
     Route: 048
     Dates: start: 20080804
  6. PANTOZOL [Concomitant]
     Dosage: 20MG PER DAY
     Route: 048
     Dates: start: 20080903, end: 20080914
  7. REPAGLINIDE [Concomitant]
     Dosage: 1MG PER DAY
     Route: 048

REACTIONS (8)
  - BRADYPHRENIA [None]
  - COORDINATION ABNORMAL [None]
  - DELIRIUM [None]
  - DIARRHOEA [None]
  - DISORIENTATION [None]
  - DISTURBANCE IN ATTENTION [None]
  - DRUG INTERACTION [None]
  - SOMNOLENCE [None]
